FAERS Safety Report 10164961 (Version 1)
Quarter: 2014Q2

REPORT INFORMATION
  Report Type: Spontaneous
  Country: US (occurrence: US)
  Receive Date: 20140510
  Receipt Date: 20140510
  Transmission Date: 20141212
  Serious: No
  Sender: FDA-Public Use
  Company Number: US-BRISTOL-MYERS SQUIBB COMPANY-19638907

PATIENT
  Age: 52 Year
  Sex: Male

DRUGS (8)
  1. BYDUREON [Suspect]
     Dates: start: 20130913, end: 20131019
  2. METFORMIN HCL [Suspect]
  3. LIPITOR [Concomitant]
  4. PEPCID [Concomitant]
  5. TOPROL [Concomitant]
  6. ZYRTEC [Concomitant]
  7. LISINOPRIL [Concomitant]
  8. BENICAR [Concomitant]

REACTIONS (2)
  - Urticaria [Unknown]
  - Lip swelling [Unknown]
